FAERS Safety Report 5103629-0 (Version None)
Quarter: 2006Q3

REPORT INFORMATION
  Report Type: 
  Country: None (occurrence: None)
  Receive Date: 20060911
  Receipt Date: 20060911
  Transmission Date: 20061208
  Serious: Yes (Hospitalization)
  Sender: FDA-Public Use
  Company Number: None

PATIENT
  Age: 53 Year
  Sex: Female
  Weight: 80.7403 kg

DRUGS (1)
  1. ACTONEL [Suspect]
     Indication: OSTEOPENIA
     Dosage: 35MG   WEEKLY   PO
     Route: 048
     Dates: start: 20060326, end: 20060326

REACTIONS (3)
  - ABASIA [None]
  - ILL-DEFINED DISORDER [None]
  - MOVEMENT DISORDER [None]
